FAERS Safety Report 10210215 (Version 1)
Quarter: 2014Q2

REPORT INFORMATION
  Report Type: Report from Study
  Country: US (occurrence: US)
  Receive Date: 20140602
  Receipt Date: 20140602
  Transmission Date: 20141212
  Serious: Yes (Hospitalization)
  Sender: FDA-Public Use
  Company Number: PHEH2014US010811

PATIENT
  Age: 16 Year
  Sex: Male
  Weight: 57.6 kg

DRUGS (3)
  1. TOBI PODHALER [Suspect]
     Indication: CYSTIC FIBROSIS
     Dosage: 112 MG, BID
     Route: 055
     Dates: end: 201405
  2. TOBI PODHALER [Suspect]
     Indication: RHINITIS
  3. TOBRAMYCIN [Suspect]
     Dosage: UNK UKN, UNK

REACTIONS (1)
  - Drug resistance [Recovered/Resolved]
